FAERS Safety Report 16414806 (Version 2)
Quarter: 2019Q3

REPORT INFORMATION
  Report Type: Spontaneous
  Country: US (occurrence: US)
  Receive Date: 20190611
  Receipt Date: 20190903
  Transmission Date: 20191004
  Serious: No
  Sender: FDA-Public Use
  Company Number: US-PFIZER INC-2019241573

PATIENT
  Age: 58 Year
  Sex: Female
  Weight: 68.4 kg

DRUGS (2)
  1. PREMPRO [Suspect]
     Active Substance: ESTROGENS, CONJUGATED\MEDROXYPROGESTERONE ACETATE
     Indication: EMOTIONAL DISORDER
  2. PREMPRO [Suspect]
     Active Substance: ESTROGENS, CONJUGATED\MEDROXYPROGESTERONE ACETATE
     Indication: MENOPAUSE
     Dosage: 1.5 MG, 1X/DAY
     Route: 048

REACTIONS (5)
  - Feeling abnormal [Unknown]
  - Intentional product misuse [Unknown]
  - Anxiety [Not Recovered/Not Resolved]
  - Disturbance in attention [Unknown]
  - Condition aggravated [Unknown]

NARRATIVE: CASE EVENT DATE: 201903
